FAERS Safety Report 14254681 (Version 2)
Quarter: 2017Q4

REPORT INFORMATION
  Report Type: Spontaneous
  Country: US (occurrence: US)
  Receive Date: 20171206
  Receipt Date: 20171214
  Transmission Date: 20180321
  Serious: Yes (Life-Threatening, Hospitalization, Other)
  Sender: FDA-Public Use
  Company Number: US-WEST-WARD PHARMACEUTICALS CORP.-US-H14001-17-04521

PATIENT
  Age: 53 Year
  Sex: Female

DRUGS (29)
  1. PREDNISONE. [Suspect]
     Active Substance: PREDNISONE
     Indication: DIFFUSE LARGE B-CELL LYMPHOMA
     Dosage: SECOND CYCLE OF R-EPOCH () ; CYCLICAL
     Route: 065
  2. CYCLOPHOSPHAMIDE. [Suspect]
     Active Substance: CYCLOPHOSPHAMIDE
     Indication: DIFFUSE LARGE B-CELL LYMPHOMA
     Dosage: FIRST CYCLE OF R-EPOCH () ; CYCLICAL
     Route: 065
  3. ETOPOSIDE. [Suspect]
     Active Substance: ETOPOSIDE
     Indication: DIFFUSE LARGE B-CELL LYMPHOMA
     Dosage: FIRST CYCLE OF R-EPOCH () ; CYCLICAL
     Route: 065
  4. RITUXIMAB. [Suspect]
     Active Substance: RITUXIMAB
     Indication: DIFFUSE LARGE B-CELL LYMPHOMA
     Dosage: FIRST CYCLE OF R-EPOCH () ; CYCLICAL
     Route: 065
  5. VINCRISTINE [Suspect]
     Active Substance: VINCRISTINE
     Indication: DIFFUSE LARGE B-CELL LYMPHOMA
     Dosage: THIRD CYCLE: 20% DOSE-REDUCED OF R-EPOCH () ; CYCLICAL
     Route: 065
  6. TRIMETHOPRIM-SULFAMETHOXAZOLE [Concomitant]
     Active Substance: SULFAMETHOXAZOLE\TRIMETHOPRIM
     Indication: PROPHYLAXIS
     Route: 065
  7. DOXORUBICIN [Suspect]
     Active Substance: DOXORUBICIN
     Indication: DIFFUSE LARGE B-CELL LYMPHOMA
     Dosage: SECOND CYCLE OF R-EPOCH () ; CYCLICAL
     Route: 065
  8. DOXORUBICIN [Suspect]
     Active Substance: DOXORUBICIN
     Indication: DIFFUSE LARGE B-CELL LYMPHOMA
     Dosage: FIRST CYCLE OF R-EPOCH () ; CYCLICAL
     Route: 065
  9. AZITHROMYCIN ANHYDROUS. [Concomitant]
     Active Substance: AZITHROMYCIN ANHYDROUS
     Indication: PROPHYLAXIS
     Route: 065
  10. VALGANCICLOVIR. [Concomitant]
     Active Substance: VALGANCICLOVIR
     Indication: PROPHYLAXIS
     Route: 065
  11. DOXORUBICIN [Suspect]
     Active Substance: DOXORUBICIN
     Indication: DIFFUSE LARGE B-CELL LYMPHOMA
     Dosage: FOURTH CYCLE: 20% DOSE-REDUCED OF R-EPOCH () ; CYCLICAL
     Route: 065
  12. DOXORUBICIN [Suspect]
     Active Substance: DOXORUBICIN
     Indication: DIFFUSE LARGE B-CELL LYMPHOMA
     Dosage: THIRD CYCLE: 20% DOSE-REDUCED OF R-EPOCH () ; CYCLICAL
     Route: 065
  13. PREDNISONE. [Suspect]
     Active Substance: PREDNISONE
     Indication: DIFFUSE LARGE B-CELL LYMPHOMA
     Dosage: THIRD CYCLE: 20% DOSE-REDUCED OF R-EPOCH () ; CYCLICAL
     Route: 065
  14. CYCLOPHOSPHAMIDE. [Suspect]
     Active Substance: CYCLOPHOSPHAMIDE
     Indication: DIFFUSE LARGE B-CELL LYMPHOMA
     Dosage: FOURTH CYCLE: 20% DOSE-REDUCED OF R-EPOCH () ; CYCLICAL
     Route: 065
  15. RITUXIMAB. [Suspect]
     Active Substance: RITUXIMAB
     Indication: DIFFUSE LARGE B-CELL LYMPHOMA
     Dosage: THIRD CYCLE: 20% DOSE-REDUCED OF R-EPOCH () ; CYCLICAL
     Route: 065
  16. ETOPOSIDE. [Suspect]
     Active Substance: ETOPOSIDE
     Indication: DIFFUSE LARGE B-CELL LYMPHOMA
     Dosage: FOURTH CYCLE: 20% DOSE-REDUCED OF R-EPOCH () ; CYCLICAL
     Route: 065
  17. PREDNISONE. [Suspect]
     Active Substance: PREDNISONE
     Indication: DIFFUSE LARGE B-CELL LYMPHOMA
     Dosage: FOURTH CYCLE: 20% DOSE-REDUCED OF R-EPOCH () ; CYCLICAL
     Route: 065
  18. PREDNISONE. [Suspect]
     Active Substance: PREDNISONE
     Indication: DIFFUSE LARGE B-CELL LYMPHOMA
     Dosage: FIRST CYCLE OF R-EPOCH () ; CYCLICAL
     Route: 065
  19. CYCLOPHOSPHAMIDE. [Suspect]
     Active Substance: CYCLOPHOSPHAMIDE
     Indication: DIFFUSE LARGE B-CELL LYMPHOMA
     Dosage: THIRD CYCLE: 20% DOSE-REDUCED OF R-EPOCH () ; CYCLICAL
     Route: 065
  20. CASPOFUNGIN [Concomitant]
     Active Substance: CASPOFUNGIN
     Indication: PROPHYLAXIS
     Route: 065
  21. CYCLOPHOSPHAMIDE. [Suspect]
     Active Substance: CYCLOPHOSPHAMIDE
     Indication: DIFFUSE LARGE B-CELL LYMPHOMA
     Dosage: SECOND CYCLE OF R-EPOCH () ; CYCLICAL
     Route: 065
  22. RITUXIMAB. [Suspect]
     Active Substance: RITUXIMAB
     Indication: DIFFUSE LARGE B-CELL LYMPHOMA
     Dosage: FOURTH CYCLE: 20% DOSE-REDUCED OF R-EPOCH () ; CYCLICAL
     Route: 065
  23. RITUXIMAB. [Suspect]
     Active Substance: RITUXIMAB
     Indication: DIFFUSE LARGE B-CELL LYMPHOMA
     Dosage: SECOND CYCLE OF R-EPOCH () ; CYCLICAL
     Route: 065
  24. VINCRISTINE [Suspect]
     Active Substance: VINCRISTINE
     Indication: DIFFUSE LARGE B-CELL LYMPHOMA
     Dosage: FOURTH CYCLE: 20% DOSE-REDUCED OF R-EPOCH () ; CYCLICAL
     Route: 065
  25. ETOPOSIDE. [Suspect]
     Active Substance: ETOPOSIDE
     Indication: DIFFUSE LARGE B-CELL LYMPHOMA
     Dosage: SECOND CYCLE OF R-EPOCH () ; CYCLICAL
     Route: 065
  26. FLUCONAZOLE. [Concomitant]
     Active Substance: FLUCONAZOLE
     Indication: PROPHYLAXIS
     Route: 065
  27. VINCRISTINE [Suspect]
     Active Substance: VINCRISTINE
     Indication: DIFFUSE LARGE B-CELL LYMPHOMA
     Dosage: FIRST CYCLE OF R-EPOCH () ; CYCLICAL
     Route: 065
  28. VINCRISTINE [Suspect]
     Active Substance: VINCRISTINE
     Indication: DIFFUSE LARGE B-CELL LYMPHOMA
     Dosage: SECOND CYCLE OF R-EPOCH () ; CYCLICAL
     Route: 065
  29. ETOPOSIDE. [Suspect]
     Active Substance: ETOPOSIDE
     Indication: DIFFUSE LARGE B-CELL LYMPHOMA
     Dosage: THIRD CYCLE: 20% DOSE-REDUCED OF R-EPOCH () ; CYCLICAL
     Route: 065

REACTIONS (5)
  - Febrile neutropenia [Unknown]
  - Bacteraemia [Unknown]
  - Cystitis haemorrhagic [Recovering/Resolving]
  - BK virus infection [Recovering/Resolving]
  - Septic shock [Unknown]
